FAERS Safety Report 9034659 (Version 2)
Quarter: 2013Q1

REPORT INFORMATION
  Report Type: Spontaneous
  Country: GB (occurrence: None)
  Receive Date: 20130118
  Receipt Date: 20130205
  Transmission Date: 20140127
  Serious: Yes (Life-Threatening, Hospitalization)
  Sender: FDA-Public Use
  Company Number: AUR-APL-2013-00514

PATIENT
  Age: 91 Year
  Sex: 0

DRUGS (19)
  1. CIPROFLOXACIN (CIPROFLOXACIN) [Suspect]
     Indication: UROSEPSIS
     Dosage: (400 MG, 2 IN 1 D)
     Route: 042
     Dates: start: 20110324
  2. FLUCLOXACILLIN (FLUCLOXACILLIN) [Suspect]
     Indication: PRODUCT USED FOR UNKNOWN INDICATION
     Dosage: (250 MG, 4 IN 1 D)
     Route: 048
     Dates: start: 20090710, end: 20090715
  3. BENZYLPENICILLIN (BENZYLPENICILLIN) [Suspect]
     Indication: PNEUMONIA
     Dates: start: 20110218
  4. DOXYCYCLINE (DOXYCYCLINE) [Suspect]
     Indication: CHRONIC OBSTRUCTIVE PULMONARY DISEASE
     Dosage: (100 MG, 2 IN 1 D)
     Route: 048
     Dates: start: 20100804
  5. ERTAPENEM (ERTAPENEM) [Suspect]
     Indication: URINARY TRACT INFECTION
     Dosage: (1 GM, 1 IN 1 D)
     Route: 042
     Dates: start: 20110330, end: 20110331
  6. LEVOFLOXACIN (LEVOFLOXACIN) [Suspect]
     Indication: PNEUMONIA
     Dosage: (500 MG, 2 IN 1 D)
     Dates: start: 20110218, end: 20110225
  7. LEVOFLOXACIN (LEVOFLOXACIN) [Suspect]
     Indication: RENAL FAILURE ACUTE
     Dosage: (500 MG, 2 IN 1 D)
     Dates: start: 20110218, end: 20110225
  8. ADCAL-D3(LEKOVIT CA) [Concomitant]
  9. ASPIRIN (ACETYLSALICYLIC ACID) [Concomitant]
  10. ATORVASTATIN (ATORVASTATIN) [Concomitant]
  11. BUMETANIDE (BUMETANIDE) [Concomitant]
  12. IPRATROPIUM BROMIDE (IPRATROPIUM BROMIDE) [Concomitant]
  13. PARACETAMOL (PARACETAMOL) [Concomitant]
  14. QUETIAPINE(QUETIAPINE) [Concomitant]
  15. SALBUTAMOL (SALBUTAMOL) [Concomitant]
  16. SENNA (SENNA ALEXANDRINA) [Concomitant]
  17. THIAMINE (THIAMINE) [Concomitant]
  18. UNIPHYLLIN CONTINUS (THEOPHYLLINE) [Concomitant]
  19. VITAMIN B COMPOUND (B-KOMPLEX) [Concomitant]

REACTIONS (9)
  - Urosepsis [None]
  - Urinary tract infection [None]
  - Pneumonia [None]
  - Clostridium difficile infection [None]
  - Confusional state [None]
  - Hypotension [None]
  - Escherichia test positive [None]
  - Diarrhoea [None]
  - Pneumonia [None]
